FAERS Safety Report 5605271-1 (Version None)
Quarter: 2008Q1

REPORT INFORMATION
  Report Type: 
  Country: None (occurrence: None)
  Receive Date: 20080129
  Receipt Date: 20080121
  Transmission Date: 20080703
  Serious: Yes (Disabling)
  Sender: FDA-Public Use
  Company Number: JP-SP-2008-00223

PATIENT
  Age: 81 Year
  Sex: Male

DRUGS (10)
  1. IMMUCYST [Suspect]
     Indication: CARCINOMA IN SITU OF BLADDER
     Route: 043
     Dates: start: 20060227, end: 20060524
  2. TAMSULOSIN HCL [Concomitant]
     Dates: start: 20060227
  3. BICALUTAMIDE [Concomitant]
     Dates: start: 20060227
  4. MECOBALAMIN [Concomitant]
     Dates: start: 20060227
  5. SENNA LEAF_SENNA POD [Concomitant]
     Dates: start: 20060227
  6. INSULIN HUMAN (GENETICAL RECOMBINATION) [Concomitant]
     Dates: start: 20060227
  7. CEFCAPENE PIVOXIL HYDROCHLORIDE [Concomitant]
     Dates: start: 20060308, end: 20060310
  8. LEVOFLOXACIN [Concomitant]
     Dates: start: 20060315, end: 20060321
  9. SULFAMETHOXAZOLE AND TRIMETHOPRIM [Concomitant]
     Dates: start: 20060329, end: 20060516
  10. MINOCYCLINE HYDROCHLORIDE [Concomitant]
     Dates: start: 20060517, end: 20060524

REACTIONS (1)
  - EMPHYSEMA [None]
